FAERS Safety Report 4509161-7 (Version None)
Quarter: 2004Q4

REPORT INFORMATION
  Report Type: 
  Country: None (occurrence: None)
  Receive Date: 20041025
  Receipt Date: 20040611
  Transmission Date: 20050328
  Serious: Yes (Other)
  Sender: FDA-Public Use
  Company Number: US-JNJFOC-20040603239

PATIENT
  Sex: Female

DRUGS (1)
  1. REMICADE [Suspect]

REACTIONS (1)
  - VASCULITIS [None]
